FAERS Safety Report 16838249 (Version 1)
Quarter: 2019Q3

REPORT INFORMATION
  Report Type: Spontaneous
  Country: IT (occurrence: IT)
  Receive Date: 20190923
  Receipt Date: 20190923
  Transmission Date: 20191005
  Serious: Yes (Other)
  Sender: FDA-Public Use
  Company Number: IT-TEVA-2019-IT-1110315

PATIENT
  Age: 84 Year
  Sex: Male
  Weight: 63 kg

DRUGS (2)
  1. OLARATUMAB [Concomitant]
     Active Substance: OLARATUMAB
     Indication: SOFT TISSUE SARCOMA
     Dosage: 15 MILLIGRAM
     Dates: start: 20181228, end: 20190719
  2. DOXORUBICIN HYDROCHLORIDE. [Suspect]
     Active Substance: DOXORUBICIN HYDROCHLORIDE
     Indication: SOFT TISSUE SARCOMA
     Dosage: 75 MILLIGRAM
     Route: 042
     Dates: start: 20181228, end: 20190408

REACTIONS (2)
  - Fatigue [Recovered/Resolved]
  - Ejection fraction decreased [Recovered/Resolved]

NARRATIVE: CASE EVENT DATE: 20190330
